FAERS Safety Report 13561998 (Version 1)
Quarter: 2017Q2

REPORT INFORMATION
  Report Type: Spontaneous
  Country: US (occurrence: US)
  Receive Date: 20170518
  Receipt Date: 20170518
  Transmission Date: 20170830
  Serious: No
  Sender: FDA-Public Use
  Company Number: US-MEDA-2017050054

PATIENT
  Sex: Female

DRUGS (1)
  1. ASTELIN [Suspect]
     Active Substance: AZELASTINE HYDROCHLORIDE

REACTIONS (1)
  - Epistaxis [Unknown]
